FAERS Safety Report 11943633 (Version 1)
Quarter: 2016Q1

REPORT INFORMATION
  Report Type: Spontaneous
  Country: US (occurrence: US)
  Receive Date: 20160125
  Receipt Date: 20160125
  Transmission Date: 20160526
  Serious: No
  Sender: FDA-Public Use
  Company Number: US-UNITED THERAPEUTICS-UNT-2015-012622

PATIENT
  Age: 23 Year
  Sex: Female
  Weight: 75.28 kg

DRUGS (8)
  1. REMODULIN [Suspect]
     Active Substance: TREPROSTINIL
     Dosage: 0.071 ?G/KG/MIN, CONTINUING
     Route: 058
     Dates: start: 20151109
  2. REMODULIN [Suspect]
     Active Substance: TREPROSTINIL
     Dosage: 0.071 ?G/KG/MIN, CONTINUING
     Route: 041
  3. REMODULIN [Suspect]
     Active Substance: TREPROSTINIL
     Indication: PULMONARY HYPERTENSION
     Dosage: 0.066  ?G/KG/MIN, CONTINUING
     Route: 058
     Dates: start: 20150320
  4. REMODULIN [Suspect]
     Active Substance: TREPROSTINIL
     Dosage: 0.069 ?G/KG/MIN, CONTINUING
     Route: 058
  5. TRACLEER [Concomitant]
     Active Substance: BOSENTAN
     Indication: PRODUCT USED FOR UNKNOWN INDICATION
  6. COUMADIN [Concomitant]
     Active Substance: WARFARIN SODIUM
     Indication: PRODUCT USED FOR UNKNOWN INDICATION
  7. SILDENAFIL. [Concomitant]
     Active Substance: SILDENAFIL
     Indication: PRODUCT USED FOR UNKNOWN INDICATION
  8. REVATIO [Concomitant]
     Active Substance: SILDENAFIL CITRATE
     Indication: PRODUCT USED FOR UNKNOWN INDICATION

REACTIONS (21)
  - Flatulence [Not Recovered/Not Resolved]
  - Oropharyngeal pain [Unknown]
  - Abdominal discomfort [Not Recovered/Not Resolved]
  - Headache [Not Recovered/Not Resolved]
  - Thrombosis in device [Unknown]
  - Abdominal pain upper [Unknown]
  - Erythema [Unknown]
  - Cough [Unknown]
  - Infusion site pain [Not Recovered/Not Resolved]
  - Drug dose omission [Unknown]
  - Device dislocation [Unknown]
  - Device issue [Recovered/Resolved]
  - Abdominal distension [Not Recovered/Not Resolved]
  - Skin tightness [Unknown]
  - Oedema peripheral [Unknown]
  - Nasal congestion [Not Recovered/Not Resolved]
  - Injection site pruritus [Unknown]
  - Ear pain [Unknown]
  - Fatigue [Not Recovered/Not Resolved]
  - Sinus congestion [Unknown]
  - Localised oedema [Unknown]

NARRATIVE: CASE EVENT DATE: 201510
